FAERS Safety Report 5974261-1 (Version None)
Quarter: 2008Q4

REPORT INFORMATION
  Report Type: 
  Country: None (occurrence: None)
  Receive Date: 20081201
  Receipt Date: 20081127
  Transmission Date: 20090506
  Serious: Yes (Hospitalization, Other)
  Sender: FDA-Public Use
  Company Number: US-PFIZER INC-2008100402

PATIENT
  Sex: Male
  Weight: 70.3 kg

DRUGS (8)
  1. XALATAN [Suspect]
     Indication: EYE DISORDER
     Dates: start: 20040101
  2. SPIRIVA [Concomitant]
  3. PREVACID [Concomitant]
  4. CARVEDILOL [Concomitant]
  5. FUROSEMIDE [Concomitant]
  6. PENTOXIFYLLINE [Concomitant]
  7. SYNTHROID [Concomitant]
  8. VENTOLIN [Concomitant]
     Route: 055

REACTIONS (9)
  - BLOOD PRESSURE ABNORMAL [None]
  - BODY HEIGHT DECREASED [None]
  - CARDIAC DISORDER [None]
  - DRUG DOSE OMISSION [None]
  - DYSPHAGIA [None]
  - FOOD POISONING [None]
  - LUNG DISORDER [None]
  - ULCER [None]
  - WEIGHT DECREASED [None]
